FAERS Safety Report 6898995-X (Version None)
Quarter: 2010Q3

REPORT INFORMATION
  Report Type: 
  Country: None (occurrence: None)
  Receive Date: 20100802
  Receipt Date: 20071218
  Transmission Date: 20110219
  Serious: No
  Sender: FDA-Public Use
  Company Number: US-PFIZER INC-2007107043

PATIENT
  Sex: Female
  Weight: 104.3 kg

DRUGS (18)
  1. LYRICA [Suspect]
     Indication: NEURALGIA
     Dates: start: 20070601
  2. KLONOPIN [Concomitant]
     Indication: ANXIETY DISORDER
  3. BUSPAR [Concomitant]
     Indication: ANXIETY DISORDER
  4. BUSPAR [Concomitant]
     Indication: PANIC ATTACK
  5. CYMBALTA [Concomitant]
     Indication: ANXIETY DISORDER
  6. CYMBALTA [Concomitant]
     Indication: PANIC ATTACK
  7. LISINOPRIL [Concomitant]
     Indication: HYPERTENSION
  8. HYDROCHLOROTHIAZIDE [Concomitant]
     Indication: HYPERTENSION
  9. TRAMADOL HCL [Concomitant]
     Indication: FIBROMYALGIA
  10. FLEXERIL [Concomitant]
     Indication: FIBROMYALGIA
  11. PROVIGIL [Concomitant]
  12. NASACORT [Concomitant]
  13. FLUTICASONE [Concomitant]
  14. PROTONIX [Concomitant]
  15. PREDNISONE [Concomitant]
  16. VIBRAMYCIN [Concomitant]
  17. LODINE [Concomitant]
  18. ROZEREM [Concomitant]

REACTIONS (2)
  - CONFUSIONAL STATE [None]
  - MEMORY IMPAIRMENT [None]
